FAERS Safety Report 12110994 (Version 1)
Quarter: 2016Q1

REPORT INFORMATION
  Report Type: Spontaneous
  Country: CN (occurrence: CN)
  Receive Date: 20160224
  Receipt Date: 20160224
  Transmission Date: 20160526
  Serious: Yes (Other)
  Sender: FDA-Public Use
  Company Number: CN-BAYER-2015-432966

PATIENT
  Sex: Female

DRUGS (1)
  1. NEXAVAR [Suspect]
     Active Substance: SORAFENIB
     Dosage: UNK
     Route: 048
     Dates: start: 2015

REACTIONS (4)
  - Alpha 1 foetoprotein increased [None]
  - Burning sensation [None]
  - Pain [None]
  - Erythema [None]

NARRATIVE: CASE EVENT DATE: 20150916
